FAERS Safety Report 23236690 (Version 1)
Quarter: 2023Q4

REPORT INFORMATION
  Report Type: Spontaneous
  Country: CZ (occurrence: CZ)
  Receive Date: 20231128
  Receipt Date: 20231128
  Transmission Date: 20240110
  Serious: Yes (Other)
  Sender: FDA-Public Use
  Company Number: CZ-002147023-NVSC2023CZ137868

PATIENT
  Age: 78 Year
  Sex: Female

DRUGS (11)
  1. BENDAMUSTINE [Suspect]
     Active Substance: BENDAMUSTINE
     Indication: Waldenstrom^s macroglobulinaemia
     Dosage: 70 MG/M2(ON DAYS 1 AND 15 OF 28 DAYS CYCLE)
     Route: 042
     Dates: start: 202108, end: 202203
  2. BENDAMUSTINE [Suspect]
     Active Substance: BENDAMUSTINE
     Dosage: 70 MG/M2, ON DAYS 1 AND 15 OF 28 DAYS CYCLE (INTRAVENOUS INFUSION ON DAYS 1 AND 15 OF A 28-DAY CYCLE
     Route: 065
     Dates: start: 202108, end: 202203
  3. BENDAMUSTINE [Suspect]
     Active Substance: BENDAMUSTINE
     Dosage: UNK (8 CYCLES OF COMBINATION OF OBINUTUZUMAB, BENDAMUSTIN, AND DEXAMETHASONE)
     Route: 065
     Dates: end: 202203
  4. CYCLOPHOSPHAMIDE [Suspect]
     Active Substance: CYCLOPHOSPHAMIDE
     Indication: Waldenstrom^s macroglobulinaemia
     Dosage: UNK, CYCLIC
     Route: 065
     Dates: start: 201909, end: 202003
  5. DEXAMETHASONE [Suspect]
     Active Substance: DEXAMETHASONE
     Indication: Waldenstrom^s macroglobulinaemia
     Dosage: UNK UNK, CYCLIC
     Route: 065
     Dates: start: 201909, end: 202003
  6. OBINUTUZUMAB [Suspect]
     Active Substance: OBINUTUZUMAB
     Indication: Waldenstrom^s macroglobulinaemia
     Dosage: 1000 MG 1 MONTH 100 MG ON FIRST DAY REST 900 MG ON SECOND DAY ROUTE OF ADMIN (FREE TEXT): INTRAVENOU
     Route: 065
     Dates: start: 202108, end: 202203
  7. OBINUTUZUMAB [Suspect]
     Active Substance: OBINUTUZUMAB
     Indication: Waldenstrom^s macroglobulinaemia
     Dosage: UNK (100MG WAS GIVEN ON DAY 1 AND 900MG FOR DAY 2.)
     Route: 065
     Dates: start: 202108, end: 202203
  8. RITUXIMAB [Suspect]
     Active Substance: RITUXIMAB
     Indication: Waldenstrom^s macroglobulinaemia
     Dosage: UNK UNK, CYCLIC
     Route: 065
     Dates: start: 201909, end: 202003
  9. CYCLOPHOSPHAMIDE [Concomitant]
     Active Substance: CYCLOPHOSPHAMIDE
     Indication: Waldenstrom^s macroglobulinaemia
     Dosage: UNK UNK, CYCLIC
     Route: 065
     Dates: start: 201909, end: 202003
  10. DEXAMETHASONE [Concomitant]
     Active Substance: DEXAMETHASONE
     Indication: Waldenstrom^s macroglobulinaemia
     Dosage: 8 CYCLES OF COMBINATION OF OBINUTUZUMAB, BENDAMUSTIN, AND DEXAMETHASONE
     Route: 065
     Dates: start: 202108, end: 202203
  11. DEXAMETHASONE [Concomitant]
     Active Substance: DEXAMETHASONE
     Dosage: UNK UNK, CYCLIC
     Route: 065
     Dates: start: 201909, end: 202003

REACTIONS (6)
  - Waldenstrom^s macroglobulinaemia [Unknown]
  - Therapy partial responder [Unknown]
  - Hypersensitivity [Unknown]
  - Off label use [Unknown]
  - Intentional product use issue [Unknown]
  - Drug intolerance [Unknown]
